FAERS Safety Report 8759875 (Version 1)
Quarter: 2012Q4

REPORT INFORMATION
  Report Type: 
  Country: FR (occurrence: FR)
  Receive Date: 20120829
  Receipt Date: 20120829
  Transmission Date: 20130627
  Serious: Yes (Other)
  Sender: FDA-Public Use
  Company Number: FR-NOVEN-12FR005186

PATIENT
  Age: 44 Year
  Sex: Male

DRUGS (4)
  1. PAROXETINE [Suspect]
     Indication: PRODUCT USED FOR UNKNOWN INDICATION
     Dosage: 20 mg, qd
     Route: 065
  2. METHADONE [Interacting]
     Indication: PRODUCT USED FOR UNKNOWN INDICATION
     Dosage: 160 mg, qd
     Route: 065
  3. METHADONE [Interacting]
     Dosage: 250 mg, qd
     Route: 065
  4. BENZODIAZEPINE DERIVATIVES [Concomitant]

REACTIONS (5)
  - Electrocardiogram QT prolonged [Unknown]
  - Torsade de pointes [Unknown]
  - Extrasystoles [Unknown]
  - Syncope [Recovered/Resolved]
  - Drug interaction [Unknown]
